FAERS Safety Report 7422761-X (Version None)
Quarter: 2011Q2

REPORT INFORMATION
  Report Type: 
  Country: None (occurrence: None)
  Receive Date: 20110419
  Receipt Date: 20110408
  Transmission Date: 20111010
  Serious: Yes (Death, Hospitalization)
  Sender: FDA-Public Use
  Company Number: JP-AMGEN-JPNCT2011014848

PATIENT
  Age: 71 Year
  Sex: Male
  Weight: 50 kg

DRUGS (3)
  1. LOXONIN-60 [Concomitant]
     Route: 048
  2. P GUARD [Concomitant]
     Route: 048
  3. PANITUMUMAB [Suspect]
     Indication: COLORECTAL CANCER
     Dosage: 6 MG/KG, Q2WK
     Route: 041
     Dates: start: 20101009, end: 20101204

REACTIONS (10)
  - DEHYDRATION [None]
  - DECREASED APPETITE [None]
  - COLORECTAL CANCER [None]
  - RASH [None]
  - NAUSEA [None]
  - ABDOMINAL PAIN [None]
  - PARONYCHIA [None]
  - DRY SKIN [None]
  - STOMATITIS [None]
  - BULBAR PALSY [None]
